FAERS Safety Report 6237045-5 (Version None)
Quarter: 2009Q2

REPORT INFORMATION
  Report Type: 
  Country: None (occurrence: None)
  Receive Date: 20090619
  Receipt Date: 20090610
  Transmission Date: 20091009
  Serious: Yes (Death)
  Sender: FDA-Public Use
  Company Number: US-PFIZER INC-2009214342

PATIENT
  Sex: Male

DRUGS (12)
  1. REVATIO [Suspect]
     Indication: PULMONARY HYPERTENSION
     Dosage: 20 MG, 3X/DAY
  2. ALDACTONE [Concomitant]
     Dosage: 25 MG, 1X/DAY
  3. GLUCOPHAGE XR [Concomitant]
     Dosage: 500 MG, 1X/DAY
  4. LANOXIN [Concomitant]
     Dosage: 125 UG, 1X/DAY
  5. COUMADIN [Concomitant]
     Dosage: 2 MG, 1X/DAY
     Dates: start: 20051101
  6. COREG [Concomitant]
     Dosage: 25 MG, 2X/DAY
     Dates: start: 20090115
  7. COREG [Concomitant]
     Dosage: 12.5 MG, 2X/DAY
     Dates: end: 20090115
  8. LASIX [Concomitant]
     Dosage: 40 MG, 1X/DAY
  9. SIMVASTATIN [Concomitant]
     Dosage: 40 MG, 1X/DAY
  10. COMBIVENT [Concomitant]
     Dosage: 2 UNK, 4X/DAY
     Dates: start: 20051101
  11. ASPIRIN [Concomitant]
     Dosage: 81 MG, 1X/DAY
     Dates: start: 20051101
  12. MAG-OX [Concomitant]
     Dosage: 400 MG, 1X/DAY

REACTIONS (1)
  - DEATH [None]
